FAERS Safety Report 9480251 (Version 1)
Quarter: 2013Q3

REPORT INFORMATION
  Report Type: Spontaneous
  Country: US (occurrence: US)
  Receive Date: 20130828
  Receipt Date: 20130828
  Transmission Date: 20140515
  Serious: Yes (Hospitalization)
  Sender: FDA-Public Use
  Company Number: US-AMGEN-KDL092006

PATIENT
  Age: 80 Year
  Sex: Female

DRUGS (3)
  1. ENBREL [Suspect]
     Indication: RHEUMATOID ARTHRITIS
     Dosage: 50 MG, QWK
     Route: 058
     Dates: start: 20040401
  2. HYDROXYCHLOROQUINE PHOSPHATE [Concomitant]
  3. AZATHIOPRINE [Concomitant]

REACTIONS (3)
  - Bacterial infection [Unknown]
  - Cystitis [Unknown]
  - Kidney infection [Unknown]
